FAERS Safety Report 19849599 (Version 2)
Quarter: 2021Q3

REPORT INFORMATION
  Report Type: Report from Study
  Country: FR (occurrence: FR)
  Receive Date: 20210917
  Receipt Date: 20210925
  Transmission Date: 20211014
  Serious: Yes (Hospitalization)
  Sender: FDA-Public Use
  Company Number: FR-REGENERON PHARMACEUTICALS, INC.-2021-86090

PATIENT

DRUGS (14)
  1. ATORVASTATINE                      /01326101/ [Concomitant]
     Active Substance: ATORVASTATIN
     Indication: HYPERTENSION
     Dosage: 20 MG, QD
     Dates: start: 2002
  2. LEVOCABASTINE [Concomitant]
     Active Substance: LEVOCABASTINE
     Indication: HYPERSENSITIVITY
     Dosage: 0.05 %, QD
     Dates: start: 2013, end: 20201103
  3. EYLEA [Suspect]
     Active Substance: AFLIBERCEPT
     Dosage: 50 MICROL, ONCE, LEFT EYE
     Route: 031
     Dates: start: 20210114, end: 20210114
  4. EYLEA [Suspect]
     Active Substance: AFLIBERCEPT
     Dosage: 50 MICROL, ONCE, LEFT EYE
     Route: 031
     Dates: start: 20210603, end: 20210603
  5. APROVEL [Concomitant]
     Active Substance: IRBESARTAN
     Indication: HYPERTENSION
     Dosage: 150 MG, QD
     Dates: start: 2002
  6. EYLEA [Suspect]
     Active Substance: AFLIBERCEPT
     Indication: NEOVASCULAR AGE-RELATED MACULAR DEGENERATION
     Dosage: 50 MICROL, ONCE
     Route: 031
     Dates: start: 20200604, end: 20200604
  7. CARTEOLOL HYDROCHLORIDE. [Concomitant]
     Active Substance: CARTEOLOL HYDROCHLORIDE
     Indication: OCULAR HYPERTENSION
     Dosage: 1 %, QD
     Dates: start: 2013, end: 20201103
  8. NUTROF TOTAL [Concomitant]
     Indication: AGE-RELATED MACULAR DEGENERATION
     Dosage: UNK
     Dates: start: 2013, end: 20201103
  9. EYLEA [Suspect]
     Active Substance: AFLIBERCEPT
     Dosage: 50 MICROL, ONCE, LEFT EYE
     Route: 031
     Dates: start: 20210225, end: 20210225
  10. EYLEA [Suspect]
     Active Substance: AFLIBERCEPT
     Dosage: 50 MICROL, ONCE, LEFT EYE
     Route: 031
     Dates: start: 20210722, end: 20210722
  11. EYLEA [Suspect]
     Active Substance: AFLIBERCEPT
     Dosage: 50 MICROL, ONCE, LEFT EYE
     Route: 031
     Dates: start: 20201210, end: 20201210
  12. EYLEA [Suspect]
     Active Substance: AFLIBERCEPT
     Dosage: 50 MICROL, ONCE, LEFT EYE
     Route: 031
     Dates: start: 20210401, end: 20210401
  13. EYLEA [Suspect]
     Active Substance: AFLIBERCEPT
     Dosage: 50 MICROL, ONCE, LEFT EYE
     Route: 031
     Dates: start: 20210429, end: 20210429
  14. ASPIRINE PROTECT [Concomitant]
     Active Substance: ASPIRIN
     Indication: HYPERTENSION
     Dosage: UNK
     Dates: start: 2002

REACTIONS (2)
  - Eye inflammation [Not Recovered/Not Resolved]
  - Eye infection [Not Recovered/Not Resolved]

NARRATIVE: CASE EVENT DATE: 20210826
